FAERS Safety Report 9458344 (Version 1)
Quarter: 2013Q3

REPORT INFORMATION
  Report Type: Spontaneous
  Country: US (occurrence: None)
  Receive Date: 20130813
  Receipt Date: 20130813
  Transmission Date: 20140515
  Serious: Yes (Hospitalization)
  Sender: FDA-Public Use
  Company Number: None

PATIENT
  Age: 24 Year
  Sex: Female
  Weight: 139.9 kg

DRUGS (1)
  1. BOTULINUM TOXIN TYPE A [Suspect]
     Route: 030
     Dates: start: 20130709

REACTIONS (3)
  - Drug hypersensitivity [None]
  - Lip swelling [None]
  - Dyspnoea [None]
